FAERS Safety Report 13081719 (Version 1)
Quarter: 2017Q1

REPORT INFORMATION
  Report Type: Spontaneous
  Country: US (occurrence: US)
  Receive Date: 20170103
  Receipt Date: 20170103
  Transmission Date: 20170428
  Serious: No
  Sender: FDA-Public Use
  Company Number: US-JAZZ-2016-US-023380

PATIENT
  Sex: Female

DRUGS (28)
  1. NORCO [Concomitant]
     Active Substance: ACETAMINOPHEN\HYDROCODONE BITARTRATE
  2. ARICEPT [Concomitant]
     Active Substance: DONEPEZIL HYDROCHLORIDE
  3. FERROUS SULFATE. [Concomitant]
     Active Substance: FERROUS SULFATE
  4. PRILOSEC [Concomitant]
     Active Substance: OMEPRAZOLE MAGNESIUM
  5. WARFARIN [Concomitant]
     Active Substance: WARFARIN
  6. XYREM [Suspect]
     Active Substance: SODIUM OXYBATE
     Indication: CATAPLEXY
     Dosage: DOSE ADJUSTMENT
     Route: 048
     Dates: start: 2004, end: 2013
  7. PROTONIX                           /00661201/ [Concomitant]
     Active Substance: OMEPRAZOLE
  8. COUMADIN [Concomitant]
     Active Substance: WARFARIN SODIUM
  9. NUVIGIL [Concomitant]
     Active Substance: ARMODAFINIL
  10. SKELAXIN [Concomitant]
     Active Substance: METAXALONE
  11. TRAMADOL. [Concomitant]
     Active Substance: TRAMADOL
  12. ULTRAM ER [Concomitant]
     Active Substance: TRAMADOL HYDROCHLORIDE
  13. LOPERAMIDE HYDROCHLORIDE. [Concomitant]
     Active Substance: LOPERAMIDE HYDROCHLORIDE
  14. ACETAMINOPHEN. [Concomitant]
     Active Substance: ACETAMINOPHEN
  15. ASPIRIN                            /00002701/ [Concomitant]
     Active Substance: ASPIRIN
  16. DIGOXIN. [Concomitant]
     Active Substance: DIGOXIN
  17. FUROSEMIDE. [Concomitant]
     Active Substance: FUROSEMIDE
  18. LYRICA [Concomitant]
     Active Substance: PREGABALIN
  19. XYREM [Suspect]
     Active Substance: SODIUM OXYBATE
     Dosage: 2.75G, BID
     Route: 048
     Dates: start: 201308, end: 2016
  20. XYREM [Suspect]
     Active Substance: SODIUM OXYBATE
     Indication: NARCOLEPSY
     Dosage: 2.25G, BID
     Route: 048
     Dates: start: 200307, end: 2004
  21. ATENOLOL. [Concomitant]
     Active Substance: ATENOLOL
  22. MORPHINE SULF [Concomitant]
     Active Substance: MORPHINE SULFATE
  23. PERCOCET [Concomitant]
     Active Substance: ACETAMINOPHEN\OXYCODONE HYDROCHLORIDE
  24. PREDNISONE                         /00044702/ [Concomitant]
     Active Substance: PREDNISONE
  25. ZOFRAN [Concomitant]
     Active Substance: ONDANSETRON HYDROCHLORIDE
  26. PROVIGIL [Concomitant]
     Active Substance: MODAFINIL
  27. VICODIN ES [Concomitant]
     Active Substance: ACETAMINOPHEN\HYDROCODONE BITARTRATE
  28. COLACE [Concomitant]
     Active Substance: DOCUSATE SODIUM

REACTIONS (1)
  - Drug ineffective [Unknown]
